FAERS Safety Report 24943255 (Version 1)
Quarter: 2025Q1

REPORT INFORMATION
  Report Type: Spontaneous
  Country: US (occurrence: None)
  Receive Date: 20250207
  Receipt Date: 20250207
  Transmission Date: 20250408
  Serious: Yes (Death)
  Sender: FDA-CTU
  Company Number: None

PATIENT
  Age: 56 Year
  Sex: Male
  Weight: 122.6 kg

DRUGS (3)
  1. BREYANZI [Suspect]
     Active Substance: LISOCABTAGENE MARALEUCEL
     Route: 042
     Dates: start: 20240930, end: 20240930
  2. Lisocel [Concomitant]
     Dates: start: 20240930, end: 20240930
  3. TOCILIZUMAB [Concomitant]
     Active Substance: TOCILIZUMAB
     Dates: start: 20241006, end: 20241006

REACTIONS (11)
  - Hypotension [None]
  - Dizziness [None]
  - Headache [None]
  - Pulmonary embolism [None]
  - Deep vein thrombosis [None]
  - Blood calcium increased [None]
  - Groin pain [None]
  - Ostomy bag placement [None]
  - Haemorrhage [None]
  - Disease progression [None]
  - Intra-abdominal fluid collection [None]

NARRATIVE: CASE EVENT DATE: 20250101
